FAERS Safety Report 13180976 (Version 1)
Quarter: 2017Q1

REPORT INFORMATION
  Report Type: Spontaneous
  Country: US (occurrence: US)
  Receive Date: 20170202
  Receipt Date: 20170202
  Transmission Date: 20170428
  Serious: No
  Sender: FDA-Public Use
  Company Number: US-SMITH AND NEPHEW, INC-2016SMT00531

PATIENT
  Sex: Male
  Weight: 92.97 kg

DRUGS (2)
  1. REGRANEX [Suspect]
     Active Substance: BECAPLERMIN
     Indication: DIABETIC FOOT
     Dosage: UNK UNK, 1X/DAY
     Route: 061
     Dates: start: 20160512, end: 20160609
  2. SILVER SULFADIAZINE. [Concomitant]
     Active Substance: SILVER SULFADIAZINE

REACTIONS (1)
  - X-ray abnormal [Unknown]
